FAERS Safety Report 9821268 (Version 2)
Quarter: 2014Q1

REPORT INFORMATION
  Report Type: Spontaneous
  Country: US (occurrence: US)
  Receive Date: 20140116
  Receipt Date: 20140116
  Transmission Date: 20141002
  Serious: No
  Sender: FDA-Public Use
  Company Number: US-GILEAD-2010-0033552

PATIENT
  Sex: Female
  Weight: 100.7 kg

DRUGS (16)
  1. LETAIRIS [Suspect]
     Indication: PULMONARY HYPERTENSION
     Route: 048
     Dates: start: 20090224
  2. LETAIRIS [Suspect]
     Indication: SLEEP APNOEA SYNDROME
  3. TAMBOCOR [Concomitant]
  4. TEKTURNA HCT [Concomitant]
  5. LISINOPRIL [Concomitant]
  6. TOPROL XL [Concomitant]
  7. DIGOXIN [Concomitant]
  8. WARFARIN SODIUM [Concomitant]
  9. ALDACTONE [Concomitant]
  10. NASONEX [Concomitant]
  11. GLUCOVANCE [Concomitant]
  12. HUMULIN [Concomitant]
  13. ALENDRONATE [Concomitant]
  14. ZYRTEC [Concomitant]
  15. CALCIUM/VITAMIN D [Concomitant]
  16. NEXIUM [Concomitant]

REACTIONS (2)
  - Feeling abnormal [Unknown]
  - Dyspnoea [Unknown]
